FAERS Safety Report 10029024 (Version 2)
Quarter: 2014Q1

REPORT INFORMATION
  Report Type: Spontaneous
  Country: AU (occurrence: AU)
  Receive Date: 20140321
  Receipt Date: 20140321
  Transmission Date: 20141002
  Serious: Yes (Hospitalization)
  Sender: FDA-Public Use
  Company Number: AU-ALLERGAN-1319952US

PATIENT
  Age: 54 Year
  Sex: Female

DRUGS (6)
  1. BOTOX [Suspect]
     Indication: SKIN WRINKLING
     Dosage: UNK
     Dates: start: 20131119, end: 20131119
  2. BOTOX [Suspect]
     Indication: SKIN WRINKLING
     Dosage: 2.5 UNITS, SINGLE
     Dates: start: 20131203, end: 20131203
  3. BOTOX [Suspect]
     Indication: SKIN WRINKLING
     Dosage: 15 UNITS, SINGLE
     Dates: start: 20131203, end: 20131203
  4. BOTOX [Suspect]
     Indication: SKIN WRINKLING
     Dosage: 20 UNITS, SINGLE
     Dates: start: 20131203, end: 20131203
  5. BOTOX [Suspect]
     Dosage: 10 UNITS, SINGLE
     Dates: start: 20131203, end: 20131203
  6. VOLIFT [Suspect]
     Dosage: UNK
     Dates: start: 20131119, end: 20131119

REACTIONS (3)
  - Cellulitis [Recovered/Resolved]
  - Facial paresis [Recovered/Resolved]
  - Off label use [Unknown]
